FAERS Safety Report 16940084 (Version 2)
Quarter: 2019Q4

REPORT INFORMATION
  Report Type: Spontaneous
  Country: US (occurrence: US)
  Receive Date: 20191021
  Receipt Date: 20191023
  Transmission Date: 20200122
  Serious: Yes (Other)
  Sender: FDA-Public Use
  Company Number: US-SHIRE-US201934134

PATIENT
  Sex: Female

DRUGS (4)
  1. CALCITRIOL. [Concomitant]
     Active Substance: CALCITRIOL
     Indication: PRODUCT USED FOR UNKNOWN INDICATION
  2. NATPARA (PARATHYROID HORMONE) [Suspect]
     Active Substance: PARATHYROID HORMONE
     Indication: THYROIDECTOMY
     Dosage: 100 MICROGRAM, 1X/DAY:QD
     Route: 065
     Dates: start: 201805
  3. VITAMIN D [COLECALCIFEROL] [Concomitant]
     Active Substance: CHOLECALCIFEROL
     Indication: PRODUCT USED FOR UNKNOWN INDICATION
  4. CALCIUM [Concomitant]
     Active Substance: CALCIUM
     Indication: HYPOGLYCAEMIA

REACTIONS (3)
  - Paraesthesia [Unknown]
  - Recalled product [Unknown]
  - Hypocalcaemia [Unknown]
